FAERS Safety Report 9302726 (Version 3)
Quarter: 2013Q2

REPORT INFORMATION
  Report Type: Spontaneous
  Country: KR (occurrence: None)
  Receive Date: 20130516
  Receipt Date: 20130613
  Transmission Date: 20140414
  Serious: Yes (Other)
  Sender: FDA-Public Use
  Company Number: 13-F-KR-00164

PATIENT
  Age: 43 Year
  Sex: Male

DRUGS (1)
  1. FOLOTYN [Suspect]
     Indication: LYMPHOMA
     Dosage: 20-60 MG OVER 2 CYCLES OVER A PERIOD OF 8 WEEKS
     Route: 042
     Dates: start: 20130311, end: 20130429

REACTIONS (2)
  - Malignant neoplasm progression [None]
  - Mycosis fungoides [None]
